FAERS Safety Report 5873374-2 (Version None)
Quarter: 2008Q3

REPORT INFORMATION
  Report Type: 
  Country: None (occurrence: None)
  Receive Date: 20080829
  Receipt Date: 20070403
  Transmission Date: 20090109
  Serious: Yes (Life-Threatening, Hospitalization)
  Sender: FDA-Public Use
  Company Number: 2007-00331FE

PATIENT
  Age: 28 Year
  Sex: Female

DRUGS (4)
  1. MENOPUR [Suspect]
     Indication: INFERTILITY
     Dosage: 75 IU SC
     Route: 058
     Dates: start: 20061027, end: 20061106
  2. GONAL-F [Suspect]
     Indication: INFERTILITY
     Dosage: 150 IU SC
     Route: 058
     Dates: start: 20061027, end: 20061106
  3. OVITRELLE(OVITRELLE) (CHORIOGONADOTROPIN ALFA) [Suspect]
     Indication: INFERTILITY
     Dosage: 0.25 MG SC
     Route: 058
     Dates: start: 20061106, end: 20061106
  4. CETRORELIX () (CETRORELIX) [Suspect]
     Indication: INFERTILITY
     Dosage: 0.25 MG SC
     Route: 058
     Dates: start: 20061103, end: 20061106

REACTIONS (3)
  - ABDOMINAL PAIN [None]
  - MALAISE [None]
  - OVARIAN DISORDER [None]
